FAERS Safety Report 8552899 (Version 4)
Quarter: 2012Q4

REPORT INFORMATION
  Report Type: 
  Country: DE (occurrence: DE)
  Receive Date: 20120508
  Receipt Date: 20120911
  Transmission Date: 20130627
  Serious: Yes (Death, Life-Threatening, Hospitalization)
  Sender: FDA-Public Use
  Company Number: DE-BRISTOL-MYERS SQUIBB COMPANY-16554461

PATIENT
  Age: 56 Year
  Sex: Male

DRUGS (6)
  1. REYATAZ CAPS [Suspect]
     Dosage: 0-0-1-0
  2. NORVIR [Suspect]
     Dosage: 0-0-1-0
  3. TRUVADA [Concomitant]
     Dosage: 1df=200mg/245mg, film coated tablets 0-0-1-0
  4. ASS [Concomitant]
     Dosage: 1df=300mg 100pieces tabs
1 in the mrng
  5. SYMBICORT [Concomitant]
     Dosage: 1df=80/4.5mcg 120units
  6. METOHEXAL SUCC [Concomitant]
     Dosage: 1df=142.5 mg 100 pieces
once in the mrng

REACTIONS (7)
  - Septic shock [Fatal]
  - Pneumonia [Unknown]
  - Acute respiratory distress syndrome [Unknown]
  - Chronic obstructive pulmonary disease [Unknown]
  - Supraventricular tachycardia [Unknown]
  - Atrial fibrillation [Unknown]
  - Lung neoplasm [Unknown]
